FAERS Safety Report 6348056-3 (Version None)
Quarter: 2009Q3

REPORT INFORMATION
  Report Type: 
  Country: None (occurrence: None)
  Receive Date: 20090910
  Receipt Date: 20090903
  Transmission Date: 20100115
  Serious: Yes (Other)
  Sender: FDA-Public Use
  Company Number: PHEH2009US10364

PATIENT
  Sex: Female

DRUGS (4)
  1. CLOZARIL [Suspect]
     Indication: SCHIZOPHRENIA
     Dosage: 1100 UNK, QD
     Route: 048
  2. PROLIXIN [Concomitant]
     Dosage: 80 MG DEC., WEEKLY
  3. RISPERDAL [Concomitant]
     Dosage: 7-8 MGS, DAILY
  4. ZYPREXA [Concomitant]
     Dosage: UNK, DAILY
     Route: 060

REACTIONS (3)
  - GASTRIC BYPASS [None]
  - MOTOR DYSFUNCTION [None]
  - TARDIVE DYSKINESIA [None]
